FAERS Safety Report 10228984 (Version 2)
Quarter: 2014Q2

REPORT INFORMATION
  Report Type: Spontaneous
  Country: GB (occurrence: GB)
  Receive Date: 20140610
  Receipt Date: 20140611
  Transmission Date: 20141212
  Serious: Yes (Hospitalization, Other)
  Sender: FDA-Public Use
  Company Number: GB-TEVA-413526ISR

PATIENT
  Age: 43 Year
  Sex: Female

DRUGS (3)
  1. PROPRANOLOL [Suspect]
     Indication: MIGRAINE PROPHYLAXIS
     Dosage: STRENGTH: 80MG
     Route: 065
  2. EPINEPHRINE [Suspect]
     Indication: ANAPHYLACTIC REACTION
     Dosage: 0.5ML OF 1:1000 SOLUTION
     Route: 030
  3. FLUCLOXACILLIN [Suspect]
     Indication: CELLULITIS
     Route: 048

REACTIONS (3)
  - Myocardial infarction [Recovering/Resolving]
  - Myocardial ischaemia [Recovering/Resolving]
  - Anaphylactic reaction [Recovered/Resolved]
